FAERS Safety Report 5795867-9 (Version None)
Quarter: 2008Q3

REPORT INFORMATION
  Report Type: 
  Country: None (occurrence: None)
  Receive Date: 20080701
  Receipt Date: 20080618
  Transmission Date: 20090109
  Serious: Yes (Life-Threatening, Hospitalization)
  Sender: FDA-Public Use
  Company Number: JP-NOVOPROD-274968

PATIENT
  Age: 59 Year
  Sex: Female
  Weight: 47 kg

DRUGS (8)
  1. NOVOLIN R [Suspect]
     Indication: DIABETES MELLITUS
     Route: 058
     Dates: start: 20051001
  2. NOVOLIN R [Suspect]
     Indication: TYPE 1 DIABETES MELLITUS
     Dosage: 14 IU, QD
     Route: 058
     Dates: start: 20061201, end: 20080421
  3. NOVOLIN N [Suspect]
     Indication: TYPE 1 DIABETES MELLITUS
     Dosage: 20-24 IU, QD
     Route: 058
     Dates: start: 20061201, end: 20080408
  4. LEVEMIR [Suspect]
     Indication: TYPE 1 DIABETES MELLITUS
     Dosage: 8-10 IU, QD
     Route: 058
     Dates: start: 20080409, end: 20080420
  5. NOVORAPID CHU [Suspect]
     Indication: TYPE 1 DIABETES MELLITUS
     Dosage: 6-14 IU, QD
     Route: 058
     Dates: start: 20080422
  6. GASTER                             /00706001/ [Suspect]
     Indication: GASTRITIS
     Dosage: 20 MG, QD
     Route: 048
     Dates: start: 20080404, end: 20080428
  7. LIPITOR [Suspect]
     Indication: HYPERLIPIDAEMIA
     Route: 048
     Dates: start: 20070109, end: 20080503
  8. LANTUS [Concomitant]
     Indication: TYPE 1 DIABETES MELLITUS
     Dosage: 6-10 IU QD
     Route: 058
     Dates: start: 20080421

REACTIONS (4)
  - BLOOD GLUCOSE ABNORMAL [None]
  - HEPATITIS [None]
  - KETOACIDOSIS [None]
  - PNEUMONIA [None]
